FAERS Safety Report 4461105-2 (Version None)
Quarter: 2004Q3

REPORT INFORMATION
  Report Type: 
  Country: None (occurrence: None)
  Receive Date: 20040928
  Receipt Date: 20040922
  Transmission Date: 20050211
  Serious: Yes (Other)
  Sender: FDA-Public Use
  Company Number: 200417225US

PATIENT
  Sex: Male
  Weight: 25 kg

DRUGS (2)
  1. LANTUS [Suspect]
     Indication: DIABETES MELLITUS INSULIN-DEPENDENT
     Dosage: DOSE UNIT: UNITS
     Dates: start: 20040101, end: 20040923
  2. NOVOLOG [Concomitant]
     Dosage: DOSE: UNK
     Dates: start: 20020101

REACTIONS (3)
  - ABNORMAL BEHAVIOUR [None]
  - EYE ROLLING [None]
  - TIC [None]
